FAERS Safety Report 25459028 (Version 1)
Quarter: 2025Q2

REPORT INFORMATION
  Report Type: Spontaneous
  Country: NL (occurrence: NL)
  Receive Date: 20250620
  Receipt Date: 20250620
  Transmission Date: 20250716
  Serious: Yes (Other)
  Sender: ACCORD
  Company Number: None

PATIENT
  Age: 63 Year
  Sex: Male
  Weight: 70 kg

DRUGS (3)
  1. SERTRALINE [Suspect]
     Active Substance: SERTRALINE HYDROCHLORIDE
     Indication: Depression
     Dosage: 1X PER DAY 1 PIECE
     Dates: start: 20231220
  2. AMIODARONE [Suspect]
     Active Substance: AMIODARONE
     Indication: Atrial fibrillation
     Dosage: 3X PER DAY 1 PIECE, STRENGTH: 200 MG
     Dates: start: 20240505, end: 20241009
  3. CEFTRIAXONE [Concomitant]
     Active Substance: CEFTRIAXONE

REACTIONS (2)
  - Product substitution issue [Unknown]
  - Pulmonary toxicity [Recovering/Resolving]
